FAERS Safety Report 8018386-8 (Version None)
Quarter: 2012Q1

REPORT INFORMATION
  Report Type: 
  Country: None (occurrence: None)
  Receive Date: 20120103
  Receipt Date: 20111222
  Transmission Date: 20120608
  Serious: Yes (Hospitalization)
  Sender: FDA-Public Use
  Company Number: US-BAYER-2011-049617

PATIENT
  Age: 30 Year
  Sex: Female
  Weight: 76.19 kg

DRUGS (6)
  1. ZOLPIDEM TARTRATE [Concomitant]
     Dosage: 10 MG, UNK
     Route: 048
     Dates: start: 20090626
  2. ADIPEX [Concomitant]
     Dosage: 37.5 MG, UNK
     Route: 048
     Dates: start: 20090531
  3. CIPROFLOXACIN HCL [Concomitant]
     Dosage: 500 MG, UNK
     Route: 048
     Dates: start: 20090626
  4. YASMIN [Suspect]
     Indication: CONTRACEPTION
     Dosage: UNK
     Route: 048
     Dates: start: 20090301, end: 20090701
  5. DROSPIRENONE AND ETHINYL ESTRADIOL [Suspect]
     Indication: CONTRACEPTION
     Dosage: UNK
     Route: 048
     Dates: start: 20090301, end: 20090701
  6. YAZ [Suspect]
     Indication: CONTRACEPTION
     Dosage: UNK
     Route: 048
     Dates: start: 20090301, end: 20090701

REACTIONS (14)
  - PAIN [None]
  - DYSPNOEA [None]
  - HOT FLUSH [None]
  - EMOTIONAL DISTRESS [None]
  - GENERAL PHYSICAL HEALTH DETERIORATION [None]
  - CHEST PAIN [None]
  - MIGRAINE [None]
  - WEIGHT INCREASED [None]
  - ANXIETY [None]
  - GAIT DISTURBANCE [None]
  - WEIGHT DECREASED [None]
  - EATING DISORDER [None]
  - PULMONARY EMBOLISM [None]
  - INSOMNIA [None]
